FAERS Safety Report 4427142-9 (Version None)
Quarter: 2004Q3

REPORT INFORMATION
  Report Type: 
  Country: None (occurrence: None)
  Receive Date: 20040726
  Receipt Date: 20040423
  Transmission Date: 20050211
  Serious: No
  Sender: FDA-Public Use
  Company Number: USA040465879

PATIENT
  Age: 79 Year
  Sex: Female

DRUGS (7)
  1. FORTEO [Suspect]
     Indication: BONE DENSITY DECREASED
     Dates: start: 20040301, end: 20040401
  2. FORTEO [Suspect]
     Indication: FRACTURE
     Dates: start: 20040301, end: 20040401
  3. FORTEO [Suspect]
     Indication: PROPHYLAXIS
     Dates: start: 20040301, end: 20040401
  4. DYACINC (ISRADIPINE) [Concomitant]
  5. TOPROL-XL [Concomitant]
  6. LIPITOR [Concomitant]
  7. ASPIRIN [Concomitant]

REACTIONS (4)
  - ASTHENIA [None]
  - MULTIPLE ALLERGIES [None]
  - NAUSEA [None]
  - RESPIRATORY TRACT CONGESTION [None]
